FAERS Safety Report 7913482-5 (Version None)
Quarter: 2011Q4

REPORT INFORMATION
  Report Type: 
  Country: None (occurrence: None)
  Receive Date: 20111110
  Receipt Date: 20111103
  Transmission Date: 20120403
  Serious: Yes (Other)
  Sender: FDA-Public Use
  Company Number: 2010SP023458

PATIENT
  Age: 54 Year
  Sex: Female
  Weight: 57 kg

DRUGS (2)
  1. CERAZETTE (DESOGESTREL /00754001/) [Suspect]
     Indication: UTERINE LEIOMYOMA
     Dosage: PO
     Route: 048
     Dates: start: 20070601, end: 20110317
  2. ENAX [Concomitant]

REACTIONS (4)
  - UTERINE LEIOMYOMA [None]
  - CONDITION AGGRAVATED [None]
  - MENSTRUATION IRREGULAR [None]
  - INAPPROPRIATE SCHEDULE OF DRUG ADMINISTRATION [None]
